FAERS Safety Report 7493551-7 (Version None)
Quarter: 2011Q2

REPORT INFORMATION
  Report Type: 
  Country: None (occurrence: None)
  Receive Date: 20110520
  Receipt Date: 20110512
  Transmission Date: 20111010
  Serious: Yes (Hospitalization, Other)
  Sender: FDA-Public Use
  Company Number: US-BRISTOL-MYERS SQUIBB COMPANY-12976320

PATIENT
  Age: 59 Year
  Sex: Male
  Weight: 93 kg

DRUGS (11)
  1. PRAVACHOL [Suspect]
     Indication: BLOOD CHOLESTEROL INCREASED
     Route: 048
     Dates: start: 20041124, end: 20050301
  2. MULTI-VITAMINS [Concomitant]
  3. LIPITOR [Concomitant]
  4. NORCO [Concomitant]
     Dosage: DOSAGE FORM = 10 MG/325MG
  5. TRICOR [Concomitant]
     Indication: HYPERCHOLESTEROLAEMIA
  6. VITAMINS [Concomitant]
  7. IBUPROFEN [Concomitant]
     Indication: PAIN
  8. FLEXERIL [Concomitant]
  9. HYDROCHLOROTHIAZIDE [Concomitant]
  10. LISINOPRIL [Concomitant]
     Indication: HYPERCHOLESTEROLAEMIA
  11. TRICOR [Concomitant]
     Indication: HYPERLIPIDAEMIA

REACTIONS (10)
  - INTERVERTEBRAL DISC PROTRUSION [None]
  - URINARY TRACT DISORDER [None]
  - MUSCULOSKELETAL PAIN [None]
  - MULTIPLE FRACTURES [None]
  - RENAL PAIN [None]
  - MUSCLE STRAIN [None]
  - MUSCLE ATROPHY [None]
  - RHABDOMYOLYSIS [None]
  - GINGIVAL DISORDER [None]
  - PAIN IN EXTREMITY [None]
